FAERS Safety Report 6373400-0 (Version None)
Quarter: 2009Q3

REPORT INFORMATION
  Report Type: 
  Country: None (occurrence: None)
  Receive Date: 20090924
  Receipt Date: 20090319
  Transmission Date: 20100115
  Serious: No
  Sender: FDA-Public Use
  Company Number: US-ASTRAZENECA-2009UW07121

PATIENT
  Age: 53 Year
  Sex: Male
  Weight: 83 kg

DRUGS (4)
  1. SEROQUEL XR [Suspect]
     Route: 048
  2. SEROQUEL XR [Suspect]
     Dosage: SEROQUEL 100 MG
     Route: 048
  3. CELEXA [Concomitant]
  4. KLONOPIN [Concomitant]

REACTIONS (2)
  - COMMUNICATION DISORDER [None]
  - NIGHTMARE [None]
